FAERS Safety Report 4386240-9 (Version None)
Quarter: 2004Q2

REPORT INFORMATION
  Report Type: 
  Country: None (occurrence: None)
  Receive Date: 20040622
  Receipt Date: 20040601
  Transmission Date: 20050107
  Serious: Yes (Death)
  Sender: FDA-Public Use
  Company Number: CA_040607021

PATIENT
  Age: 67 Year
  Sex: Male
  Weight: 73 kg

DRUGS (10)
  1. PROZAC [Suspect]
     Indication: AGITATION
     Dosage: 20 MG/1 DAY
     Dates: start: 20030523, end: 20030603
  2. CELEXA [Concomitant]
  3. NADOLOL [Concomitant]
  4. AMLODIPINE [Concomitant]
  5. HYTRIN [Concomitant]
  6. ZOCOR [Concomitant]
  7. ALLOPURINOL [Concomitant]
  8. IMOVANE(ZOPICLONE) [Concomitant]
  9. CLONAZEPAM [Concomitant]
  10. VITAMIN E [Concomitant]

REACTIONS (13)
  - AFFECT LABILITY [None]
  - AGITATION [None]
  - ANXIETY [None]
  - BLOOD PRESSURE INCREASED [None]
  - COMPLETED SUICIDE [None]
  - DEMENTIA ALZHEIMER'S TYPE [None]
  - DISTURBANCE IN ATTENTION [None]
  - FEELING OF DESPAIR [None]
  - HALLUCINATION, VISUAL [None]
  - HEART RATE INCREASED [None]
  - IMPULSIVE BEHAVIOUR [None]
  - SELF INJURIOUS BEHAVIOUR [None]
  - SERUM SEROTONIN INCREASED [None]
